FAERS Safety Report 9778479 (Version 1)
Quarter: 2013Q4

REPORT INFORMATION
  Report Type: Spontaneous
  Country: JP (occurrence: JP)
  Receive Date: 20131223
  Receipt Date: 20131223
  Transmission Date: 20140711
  Serious: Yes (Hospitalization)
  Sender: FDA-Public Use
  Company Number: JP-MYLANLABS-2013S1028134

PATIENT
  Age: 42 Year
  Sex: Male

DRUGS (7)
  1. PREDNISOLONE [Suspect]
     Indication: LYMPHOMA
     Route: 048
  2. ENDOXAN [Concomitant]
     Indication: PRODUCT USED FOR UNKNOWN INDICATION
     Route: 041
  3. ONCOVIN [Concomitant]
     Indication: LYMPHOMA
     Route: 041
  4. THERARUBICIN [Concomitant]
     Indication: LYMPHOMA
     Route: 041
  5. TENOFOVIR [Concomitant]
     Indication: HIV INFECTION
     Route: 048
  6. EMTRICITABINE [Concomitant]
     Indication: HIV INFECTION
     Route: 048
  7. STOCRIN [Concomitant]
     Indication: HIV INFECTION
     Route: 048

REACTIONS (3)
  - Pneumocystis jirovecii pneumonia [Recovered/Resolved]
  - Cytomegalovirus chorioretinitis [Recovered/Resolved]
  - Immune reconstitution inflammatory syndrome [Unknown]
